FAERS Safety Report 5241505-3 (Version None)
Quarter: 2007Q1

REPORT INFORMATION
  Report Type: 
  Country: None (occurrence: None)
  Receive Date: 20070220
  Receipt Date: 20070209
  Transmission Date: 20070707
  Serious: Yes (Hospitalization)
  Sender: FDA-Public Use
  Company Number: FR-GLAXOSMITHKLINE-B0457784A

PATIENT
  Age: 44 Year
  Sex: Female

DRUGS (4)
  1. TELZIR [Suspect]
     Indication: HIV INFECTION
     Dosage: 2UNIT PER DAY
     Route: 048
     Dates: start: 20060222
  2. KIVEXA [Suspect]
     Indication: HIV INFECTION
     Dosage: 1UNIT PER DAY
     Route: 048
     Dates: start: 20060222
  3. INVIRASE [Concomitant]
     Indication: HIV INFECTION
     Route: 065
     Dates: start: 20060222
  4. NORVIR [Concomitant]
     Indication: HIV INFECTION
     Route: 065
     Dates: start: 20060222

REACTIONS (2)
  - PRURIGO [None]
  - RASH GENERALISED [None]
